FAERS Safety Report 18563934 (Version 1)
Quarter: 2020Q4

REPORT INFORMATION
  Report Type: Spontaneous
  Country: US (occurrence: US)
  Receive Date: 20201130
  Receipt Date: 20201130
  Transmission Date: 20210114
  Serious: Yes (Hospitalization)
  Sender: FDA-Public Use
  Company Number: None

PATIENT
  Age: 57 Year
  Sex: Female

DRUGS (29)
  1. ESCITALOPRAM [Concomitant]
     Active Substance: ESCITALOPRAM OXALATE
  2. IPRATROPIUM [Concomitant]
     Active Substance: IPRATROPIUM
  3. SPIRIVA [Concomitant]
     Active Substance: TIOTROPIUM BROMIDE MONOHYDRATE
  4. HUMIRA [Suspect]
     Active Substance: ADALIMUMAB
     Indication: RHEUMATOID ARTHRITIS
     Dosage: ?          OTHER FREQUENCY:EVERY 2 WEEKS;?
     Route: 058
     Dates: start: 20200710
  5. BENZONATATE. [Concomitant]
     Active Substance: BENZONATATE
  6. HYDROXYZ HCL [Concomitant]
     Active Substance: HYDROXYZINE HYDROCHLORIDE
  7. SYMBICORT [Concomitant]
     Active Substance: BUDESONIDE\FORMOTEROL FUMARATE DIHYDRATE
  8. VERPA,IL [Concomitant]
  9. DULLOXETINE [Concomitant]
  10. ATORVATION [Concomitant]
  11. FLUTICASONE. [Concomitant]
     Active Substance: FLUTICASONE
  12. LEVOTHYROXIN [Concomitant]
     Active Substance: LEVOTHYROXINE
  13. POT CL MICRO [Concomitant]
  14. ANTI-ITCH NOS [Concomitant]
     Active Substance: CAMPHOR (SYNTHETIC)\MENTHOL OR DIPHENHYDRAMINE HYDROCHLORIDE
  15. FOLIC ACID. [Concomitant]
     Active Substance: FOLIC ACID
  16. PREGABALIN. [Concomitant]
     Active Substance: PREGABALIN
  17. ALBUTEROL. [Concomitant]
     Active Substance: ALBUTEROL
  18. NURTEC ODT [Concomitant]
     Active Substance: RIMEGEPANT SULFATE
  19. CEVMELINE [Concomitant]
  20. GLIMPIRIDE [Concomitant]
     Active Substance: GLIMEPIRIDE
  21. MONTELUKAST [Concomitant]
     Active Substance: MONTELUKAST SODIUM
  22. PIGLITAZONE [Concomitant]
  23. PREDNISONE. [Concomitant]
     Active Substance: PREDNISONE
  24. DICLOFENAC [Concomitant]
     Active Substance: DICLOFENAC
  25. HYDPOL/CPM [Concomitant]
  26. JARDIANCE [Concomitant]
     Active Substance: EMPAGLIFLOZIN
  27. PANTOPRAZOLE [Concomitant]
     Active Substance: PANTOPRAZOLE
  28. RESTASIS [Concomitant]
     Active Substance: CYCLOSPORINE
  29. VITAMIN D [Concomitant]
     Active Substance: VITAMIN D NOS

REACTIONS (2)
  - Therapy interrupted [None]
  - Hospitalisation [None]

NARRATIVE: CASE EVENT DATE: 20201113
